FAERS Safety Report 15353178 (Version 1)
Quarter: 2018Q3

REPORT INFORMATION
  Report Type: Spontaneous
  Country: PT (occurrence: PT)
  Receive Date: 20180905
  Receipt Date: 20180905
  Transmission Date: 20181010
  Serious: Yes (Other)
  Sender: FDA-Public Use
  Company Number: PT-JNJFOC-20180843583

PATIENT

DRUGS (4)
  1. INFLIXIMAB, RECOMBINANT [Suspect]
     Active Substance: INFLIXIMAB
     Indication: INFLAMMATORY BOWEL DISEASE
     Route: 042
  2. SALAZOPYRIN [Concomitant]
     Active Substance: SULFASALAZINE
     Route: 065
  3. PREDNISOLONE. [Concomitant]
     Active Substance: PREDNISOLONE
     Route: 065
  4. MESALAZINE [Concomitant]
     Active Substance: MESALAMINE
     Route: 065

REACTIONS (6)
  - Inflammatory bowel disease [Recovered/Resolved]
  - Neck pain [Recovered/Resolved]
  - Rash generalised [Unknown]
  - Arthralgia [Recovered/Resolved]
  - Lupus-like syndrome [Unknown]
  - Erythema nodosum [Unknown]
